FAERS Safety Report 22275699 (Version 4)
Quarter: 2025Q1

REPORT INFORMATION
  Report Type: Spontaneous
  Country: US (occurrence: US)
  Receive Date: 20230502
  Receipt Date: 20250212
  Transmission Date: 20250409
  Serious: No
  Sender: SANOFI AVENTIS
  Company Number: US-SA-SAC20230427000888

PATIENT
  Age: 61 Year
  Sex: Female

DRUGS (1)
  1. DUPIXENT [Suspect]
     Active Substance: DUPILUMAB
     Indication: Asthma
     Dosage: 300 MG, QOW
     Route: 058

REACTIONS (7)
  - Cough [Unknown]
  - Skin infection [Recovering/Resolving]
  - Impaired quality of life [Unknown]
  - Erythema [Recovering/Resolving]
  - Injection site pain [Unknown]
  - Asthma [Unknown]
  - Therapeutic response unexpected [Unknown]
